FAERS Safety Report 5492888-0 (Version None)
Quarter: 2007Q4

REPORT INFORMATION
  Report Type: 
  Country: None (occurrence: None)
  Receive Date: 20071018
  Receipt Date: 20071003
  Transmission Date: 20080405
  Serious: Yes (Hospitalization)
  Sender: FDA-Public Use
  Company Number: 162435ISR

PATIENT
  Age: 64 Year
  Sex: Male

DRUGS (3)
  1. CARBOPLATIN [Suspect]
     Dosage: INTRAVENOUS
     Route: 042
     Dates: start: 20030701
  2. CAPECITABINE [Suspect]
     Dosage: 1000 MG/M2, ORAL
     Route: 048
     Dates: start: 20030701
  3. DOCETAXEL [Suspect]
     Dosage: 70 MG/M2, INTRAVENOUS
     Route: 042
     Dates: start: 20030701

REACTIONS (22)
  - ACUTE RESPIRATORY DISTRESS SYNDROME [None]
  - CARDIAC FAILURE [None]
  - CATHETER RELATED INFECTION [None]
  - DISSEMINATED INTRAVASCULAR COAGULATION [None]
  - DYSPHAGIA [None]
  - ERYTHEMA [None]
  - HAEMODIALYSIS [None]
  - HAEMODYNAMIC INSTABILITY [None]
  - LUNG INFECTION [None]
  - LYMPHADENOPATHY [None]
  - MUCOSAL INFLAMMATION [None]
  - NECROSIS [None]
  - NECROTISING FASCIITIS [None]
  - NEPHRITIS INTERSTITIAL [None]
  - PHARYNGEAL OEDEMA [None]
  - RADIATION SKIN INJURY [None]
  - RENAL FAILURE ACUTE [None]
  - RENAL TUBULAR NECROSIS [None]
  - SEPTIC SHOCK [None]
  - STREPTOCOCCAL INFECTION [None]
  - SWOLLEN TONGUE [None]
  - TREATMENT NONCOMPLIANCE [None]
